FAERS Safety Report 18315523 (Version 1)
Quarter: 2020Q3

REPORT INFORMATION
  Report Type: Spontaneous
  Country: GB (occurrence: GB)
  Receive Date: 20200926
  Receipt Date: 20200926
  Transmission Date: 20201103
  Serious: Yes (Other)
  Sender: FDA-Public Use
  Company Number: GB-TEVA-2020-GB-1831450

PATIENT
  Age: 61 Year
  Sex: Female
  Weight: 82 kg

DRUGS (6)
  1. RHINOCORT [Concomitant]
     Active Substance: BUDESONIDE
  2. NYSTATIN. [Concomitant]
     Active Substance: NYSTATIN
  3. ESTRADIOL. [Concomitant]
     Active Substance: ESTRADIOL
  4. RELVAR ELLIPTA [Concomitant]
     Active Substance: FLUTICASONE FUROATE\VILANTEROL TRIFENATATE
     Dosage: 92 MG
  5. EZETIMIBE. [Suspect]
     Active Substance: EZETIMIBE
     Indication: BLOOD CHOLESTEROL INCREASED
     Dosage: 10 MG
     Dates: start: 20200515, end: 20200824
  6. FEXOFENADINE [Concomitant]
     Active Substance: FEXOFENADINE HYDROCHLORIDE

REACTIONS (14)
  - Abdominal pain [Not Recovered/Not Resolved]
  - Dyspepsia [Not Recovered/Not Resolved]
  - Oropharyngeal pain [Not Recovered/Not Resolved]
  - Back pain [Not Recovered/Not Resolved]
  - Arthralgia [Not Recovered/Not Resolved]
  - Abdominal distension [Unknown]
  - Chest pain [Not Recovered/Not Resolved]
  - Abnormal faeces [Unknown]
  - Hyperhidrosis [Not Recovered/Not Resolved]
  - Haematochezia [Unknown]
  - Fatigue [Not Recovered/Not Resolved]
  - Oral pain [Not Recovered/Not Resolved]
  - Dysphonia [Not Recovered/Not Resolved]
  - Rash [Not Recovered/Not Resolved]

NARRATIVE: CASE EVENT DATE: 20200601
